FAERS Safety Report 18881897 (Version 1)
Quarter: 2021Q1

REPORT INFORMATION
  Report Type: Spontaneous
  Country: US (occurrence: US)
  Receive Date: 20210212
  Receipt Date: 20210212
  Transmission Date: 20210420
  Serious: Yes (Other)
  Sender: FDA-Public Use
  Company Number: US-TEVA-2021-US-1878695

PATIENT
  Age: 85 Year
  Sex: Female

DRUGS (5)
  1. METOPROLOL. [Suspect]
     Active Substance: METOPROLOL
     Route: 065
     Dates: start: 2020, end: 202010
  2. NITROFURANTOIN. [Suspect]
     Active Substance: NITROFURANTOIN
     Route: 065
     Dates: start: 202007, end: 202010
  3. HYDROCHLOROTHIAZIDE. [Concomitant]
     Active Substance: HYDROCHLOROTHIAZIDE
     Indication: OEDEMA
  4. POTASSIUM [Concomitant]
     Active Substance: POTASSIUM
  5. FLECAINIDE [Suspect]
     Active Substance: FLECAINIDE
     Dosage: 100 MILLIGRAM DAILY; FLECAINIDE 50 MG EVERY 12 HOURS
     Dates: start: 2020, end: 202010

REACTIONS (5)
  - Feeling abnormal [Recovered/Resolved]
  - Fall [Recovered/Resolved]
  - Nausea [Recovered/Resolved]
  - Hip fracture [Unknown]
  - Dizziness [Recovered/Resolved]

NARRATIVE: CASE EVENT DATE: 2020
